FAERS Safety Report 22346993 (Version 11)
Quarter: 2024Q1

REPORT INFORMATION
  Report Type: Report from Study
  Country: US (occurrence: US)
  Receive Date: 20230520
  Receipt Date: 20240112
  Transmission Date: 20240409
  Serious: No
  Sender: FDA-Public Use
  Company Number: US-002147023-NVSC2023US114529

PATIENT
  Sex: Female

DRUGS (1)
  1. KESIMPTA [Suspect]
     Active Substance: OFATUMUMAB
     Indication: Multiple sclerosis
     Dosage: UNK
     Route: 065

REACTIONS (7)
  - Rhinorrhoea [Unknown]
  - Balance disorder [Unknown]
  - Chills [Unknown]
  - Injection site pain [Unknown]
  - Injection site discomfort [Recovered/Resolved]
  - Aphonia [Unknown]
  - Cough [Unknown]
